FAERS Safety Report 14498940 (Version 1)
Quarter: 2018Q1

REPORT INFORMATION
  Report Type: Spontaneous
  Country: JP (occurrence: JP)
  Receive Date: 20180207
  Receipt Date: 20180207
  Transmission Date: 20180509
  Serious: Yes (Life-Threatening, Hospitalization, Other)
  Sender: FDA-Public Use
  Company Number: JP-PFIZER INC-2017546779

PATIENT
  Age: 57 Year
  Sex: Male
  Weight: 60 kg

DRUGS (3)
  1. SUTENT [Suspect]
     Active Substance: SUNITINIB MALATE
     Dosage: 3 DF, ONCE DAILY
     Route: 048
     Dates: start: 20160630, end: 20170104
  2. SUTENT [Suspect]
     Active Substance: SUNITINIB MALATE
     Indication: METASTATIC RENAL CELL CARCINOMA
     Dosage: 3 DF, ONCE DAILY
     Route: 048
     Dates: start: 20160412, end: 20160608
  3. SUTENT [Suspect]
     Active Substance: SUNITINIB MALATE
     Dosage: 2 DF, ONCE DAILY
     Route: 048
     Dates: start: 20170119

REACTIONS (6)
  - Dizziness [Unknown]
  - Decreased appetite [Unknown]
  - Haemoglobin decreased [Unknown]
  - Gastric ulcer haemorrhage [Recovered/Resolved]
  - Melaena [Unknown]
  - Blood pressure decreased [Unknown]

NARRATIVE: CASE EVENT DATE: 20160606
